FAERS Safety Report 6566607-0 (Version None)
Quarter: 2010Q1

REPORT INFORMATION
  Report Type: 
  Country: None (occurrence: None)
  Receive Date: 20100202
  Receipt Date: 20100119
  Transmission Date: 20100710
  Serious: Yes (Hospitalization, Other)
  Sender: FDA-Public Use
  Company Number: US-ROCHE-667375

PATIENT
  Sex: Male
  Weight: 71.7 kg

DRUGS (12)
  1. INTERFERON ALFA [Suspect]
     Indication: RENAL CANCER
     Dosage: THERAPY HELD
     Route: 058
     Dates: start: 20090929
  2. INTERFERON ALFA [Suspect]
     Route: 058
     Dates: start: 20091104, end: 20091123
  3. BEVACIZUMAB [Suspect]
     Indication: RENAL CANCER
     Dosage: FREQUENCY REPORTED AS QOW.
     Route: 042
     Dates: start: 20090929
  4. BEVACIZUMAB [Suspect]
     Route: 042
     Dates: end: 20091125
  5. BENADRYL [Concomitant]
     Indication: ALLERGY PROPHYLAXIS
     Dosage: AS NECESSARY
     Route: 048
     Dates: start: 20091103
  6. TYLENOL (CAPLET) [Concomitant]
     Indication: ARTHRALGIA
     Dosage: INDICATION: ARTHRALGIA WITH INTERFERON. FREQUENCY: 4 TIMES AS NESSESSARY.
     Route: 048
     Dates: start: 20091002
  7. PAXIL [Concomitant]
     Indication: DEPRESSION
     Route: 048
     Dates: start: 20091014
  8. FERROUS SULFATE TAB [Concomitant]
     Route: 048
     Dates: start: 20091016
  9. NYSTATIN [Concomitant]
     Indication: STOMATITIS
     Dosage: DOSE REPORTED AS 10-15
     Route: 048
     Dates: start: 20091021
  10. ADVAIR DISKUS 100/50 [Concomitant]
     Indication: ASTHMA
     Dosage: AS NEEDED, FORM: PUFF.
     Dates: start: 20010101
  11. MEGACE [Concomitant]
     Route: 048
     Dates: start: 20090922
  12. ALBUTEROL [Concomitant]
     Indication: ASTHMA
     Dosage: TAKEN AS NEEDED.
     Dates: start: 20010101

REACTIONS (4)
  - FATIGUE [None]
  - HYPOTHYROIDISM [None]
  - MUSCULAR WEAKNESS [None]
  - TREMOR [None]
